FAERS Safety Report 5803358-1 (Version None)
Quarter: 2008Q3

REPORT INFORMATION
  Report Type: 
  Country: None (occurrence: None)
  Receive Date: 20080708
  Receipt Date: 20080627
  Transmission Date: 20090109
  Serious: Yes (Hospitalization)
  Sender: FDA-Public Use
  Company Number: FR-AVENTIS-200813282EU

PATIENT
  Age: 81 Year
  Sex: Female

DRUGS (4)
  1. FLUDEX                             /00340101/ [Suspect]
     Indication: HYPERTENSION
     Route: 048
     Dates: start: 20080504, end: 20080507
  2. HERBAL PREPARATION [Concomitant]
  3. SELENIUM-ACE [Concomitant]
  4. BIOPTIMUM [Concomitant]

REACTIONS (2)
  - HYPOKALAEMIA [None]
  - RHABDOMYOLYSIS [None]
